FAERS Safety Report 23130263 (Version 1)
Quarter: 2023Q4

REPORT INFORMATION
  Report Type: Spontaneous
  Country: US (occurrence: US)
  Receive Date: 20231031
  Receipt Date: 20231031
  Transmission Date: 20240109
  Serious: Yes (Other)
  Sender: FDA-Public Use
  Company Number: US-ORGANON-O2310USA003514

PATIENT
  Age: 33 Year
  Sex: Female

DRUGS (1)
  1. GANIRELIX ACETATE [Suspect]
     Active Substance: GANIRELIX ACETATE
     Dosage: 250 MICROGRAM
     Route: 058
     Dates: start: 202310

REACTIONS (4)
  - Haemorrhage [Unknown]
  - Needle issue [Unknown]
  - Device difficult to use [Unknown]
  - Poor quality device used [Unknown]

NARRATIVE: CASE EVENT DATE: 20231001
